FAERS Safety Report 4295864-9 (Version None)
Quarter: 2004Q1

REPORT INFORMATION
  Report Type: 
  Country: None (occurrence: None)
  Receive Date: 20040216
  Receipt Date: 20031118
  Transmission Date: 20041129
  Serious: Yes (Life-Threatening, Hospitalization)
  Sender: FDA-Public Use
  Company Number: US-GLAXOSMITHKLINE-A0440877A

PATIENT
  Age: 16 Year
  Sex: Female

DRUGS (2)
  1. LAMICTAL [Suspect]
     Dosage: 100MG PER DAY
     Route: 048
     Dates: start: 20030911, end: 20031025
  2. TRILEPTAL [Suspect]
     Dosage: 300MG PER DAY
     Route: 048
     Dates: start: 20030401, end: 20031025

REACTIONS (3)
  - ERYTHEMA MULTIFORME [None]
  - MUCOUS MEMBRANE DISORDER [None]
  - RASH [None]
